FAERS Safety Report 8102992-6 (Version None)
Quarter: 2012Q1

REPORT INFORMATION
  Report Type: 
  Country: None (occurrence: None)
  Receive Date: 20120127
  Receipt Date: 20120113
  Transmission Date: 20120608
  Serious: Yes (Hospitalization)
  Sender: FDA-Public Use
  Company Number: 1161831

PATIENT
  Age: 38 Year
  Sex: Female

DRUGS (8)
  1. PACLITAXEL [Suspect]
     Indication: CERVIX CARCINOMA
     Dosage: 155 MG/M**2, OVER 3 HOURS, INTRAVENOUS DRIP
     Route: 041
  2. RANITIDINE [Concomitant]
  3. DEXAMETHASONE [Concomitant]
  4. PROMETHAZINE [Concomitant]
  5. SODIUM CHLORIDE [Concomitant]
  6. CISPLATIN [Suspect]
     Indication: CERVIX CARCINOMA
     Dosage: 40 MG, WEEKLY FOR 5 DOSES, INTRAVENOUS DRIP
     Route: 041
  7. CARBOPLATIN [Suspect]
     Indication: CERVIX CARCINOMA
     Dosage: AUC5, IN ONE HOUR, INTRAVENOUS (NOT OTHERWISE SPECIFIED)
     Route: 042
  8. (SEROTININ (5HT3) ANTAGONISTS) [Concomitant]

REACTIONS (5)
  - PANCYTOPENIA [None]
  - ABDOMINAL PAIN [None]
  - MUSCULOSKELETAL PAIN [None]
  - MALAISE [None]
  - CHEST PAIN [None]
